FAERS Safety Report 20604832 (Version 1)
Quarter: 2022Q1

REPORT INFORMATION
  Report Type: Spontaneous
  Country: PL (occurrence: PL)
  Receive Date: 20220317
  Receipt Date: 20220317
  Transmission Date: 20220424
  Serious: Yes (Life-Threatening, Hospitalization, Other)
  Sender: FDA-Public Use
  Company Number: PL-KRKA-PL2018K00022LIT

PATIENT
  Age: 50 Year
  Sex: Male

DRUGS (4)
  1. IMATINIB [Suspect]
     Active Substance: IMATINIB
     Indication: Chronic myeloid leukaemia
     Dosage: 400 MG, PER DAY
     Route: 065
     Dates: start: 2007
  2. IMATINIB [Suspect]
     Active Substance: IMATINIB
     Dosage: 600 MG, PER DAY
     Route: 065
     Dates: start: 2007
  3. DASATINIB [Suspect]
     Active Substance: DASATINIB
     Indication: Product used for unknown indication
     Dosage: 80 MILLIGRAM, ONCE A DAY
     Route: 065
  4. DASATINIB [Suspect]
     Active Substance: DASATINIB
     Dosage: 100 MILLIGRAM, ONCE A DAY
     Route: 065

REACTIONS (4)
  - Neutropenia [Unknown]
  - Treatment failure [Unknown]
  - Dyspnoea exertional [Unknown]
  - Drug ineffective [Unknown]

NARRATIVE: CASE EVENT DATE: 20101201
